FAERS Safety Report 17610444 (Version 2)
Quarter: 2020Q2

REPORT INFORMATION
  Report Type: Spontaneous
  Country: US (occurrence: US)
  Receive Date: 20200401
  Receipt Date: 20200422
  Transmission Date: 20200713
  Serious: No
  Sender: FDA-Public Use
  Company Number: US-PFIZER INC-2020131287

PATIENT
  Age: 72 Year
  Sex: Female
  Weight: 78.93 kg

DRUGS (2)
  1. VYNDAQEL [Suspect]
     Active Substance: TAFAMIDIS MEGLUMINE
     Indication: CARDIAC AMYLOIDOSIS
     Dosage: 80 MG (FOUR CAPSULES), DAILY
     Route: 048
     Dates: start: 2019
  2. VYNDAQEL [Suspect]
     Active Substance: TAFAMIDIS MEGLUMINE
     Indication: AMYLOIDOSIS

REACTIONS (7)
  - Rash pruritic [Unknown]
  - Influenza like illness [Unknown]
  - Drug ineffective [Unknown]
  - Haemoglobin decreased [Unknown]
  - Dry skin [Unknown]
  - Skin exfoliation [Unknown]
  - Skin lesion [Unknown]

NARRATIVE: CASE EVENT DATE: 202003
